FAERS Safety Report 8956311 (Version 3)
Quarter: 2013Q1

REPORT INFORMATION
  Report Type: Spontaneous
  Country: SK (occurrence: SK)
  Receive Date: 20121210
  Receipt Date: 20130201
  Transmission Date: 20140127
  Serious: Yes (Hospitalization, Other)
  Sender: FDA-Public Use
  Company Number: SK-ELI_LILLY_AND_COMPANY-SK201212000605

PATIENT
  Age: 86 Year
  Sex: Female

DRUGS (8)
  1. FORSTEO [Suspect]
     Indication: OSTEOPOROSIS POSTMENOPAUSAL
     Dosage: 20 UG, QD
     Route: 058
     Dates: start: 20121008
  2. HELICID [Concomitant]
     Dosage: UNK, UNKNOWN
     Route: 065
  3. LOSARTAN [Concomitant]
     Dosage: UNK, UNKNOWN
     Route: 065
  4. EUTHYROX [Concomitant]
     Dosage: UNK, UNKNOWN
     Route: 065
  5. EGILOK [Concomitant]
     Dosage: UNK, UNKNOWN
     Route: 065
  6. ANOPYRIN [Concomitant]
     Dosage: UNK, UNKNOWN
     Route: 065
  7. MILURIT [Concomitant]
     Dosage: UNK, UNKNOWN
     Route: 065
  8. ALPHA D3 [Concomitant]
     Dosage: UNK, UNKNOWN
     Route: 065

REACTIONS (6)
  - Acute myocardial infarction [Recovered/Resolved]
  - Malaise [Unknown]
  - Discomfort [Unknown]
  - Flatulence [Unknown]
  - Pain in extremity [Unknown]
  - Dyspnoea [Unknown]
